FAERS Safety Report 14733569 (Version 2)
Quarter: 2018Q2

REPORT INFORMATION
  Report Type: Report from Study
  Country: CA (occurrence: CA)
  Receive Date: 20180409
  Receipt Date: 20180424
  Transmission Date: 20180711
  Serious: Yes (Other)
  Sender: FDA-Public Use
  Company Number: CA-AMGEN-CANSL2018046628

PATIENT
  Age: 68 Year
  Sex: Female

DRUGS (7)
  1. ENBREL [Suspect]
     Active Substance: ETANERCEPT
     Dosage: 50 MG, UNK
     Route: 065
  2. CELEBREX [Concomitant]
     Active Substance: CELECOXIB
     Dosage: UNK
  3. METFORMIN [Concomitant]
     Active Substance: METFORMIN HYDROCHLORIDE
     Indication: DIABETES MELLITUS
     Dosage: UNK
  4. NEXIUM [Concomitant]
     Active Substance: ESOMEPRAZOLE MAGNESIUM
     Dosage: 40 MG, UNK
  5. RANITIDINE. [Concomitant]
     Active Substance: RANITIDINE
     Dosage: UNK
  6. ROSUVASTATIN. [Concomitant]
     Active Substance: ROSUVASTATIN
     Indication: BLOOD CHOLESTEROL INCREASED
     Dosage: UNK
  7. ENBREL [Suspect]
     Active Substance: ETANERCEPT
     Indication: PSORIATIC ARTHROPATHY
     Dosage: 50 MG, UNK
     Route: 065
     Dates: start: 20160301

REACTIONS (4)
  - Lung disorder [Unknown]
  - Productive cough [Not Recovered/Not Resolved]
  - Decreased immune responsiveness [Unknown]
  - Viral infection [Recovered/Resolved]

NARRATIVE: CASE EVENT DATE: 2017
